FAERS Safety Report 14958609 (Version 1)
Quarter: 2018Q2

REPORT INFORMATION
  Report Type: Spontaneous
  Country: FR (occurrence: FR)
  Receive Date: 20180531
  Receipt Date: 20180531
  Transmission Date: 20180711
  Serious: Yes (Hospitalization)
  Sender: FDA-Public Use
  Company Number: FR-TEVA-2018-FR-900432

PATIENT
  Age: 72 Year
  Sex: Female
  Weight: 60 kg

DRUGS (11)
  1. RIMIFON [Suspect]
     Active Substance: ISONIAZID
     Indication: MYCOBACTERIUM TEST POSITIVE
     Route: 048
     Dates: start: 20170426, end: 20170625
  2. DEXAMBUTOL 500 MG, COMPRIM? PELLICUL? [Suspect]
     Active Substance: ETHAMBUTOL HYDROCHLORIDE
     Indication: MYCOBACTERIUM TEST POSITIVE
     Route: 048
     Dates: start: 20170426, end: 20170625
  3. CORTANCYL 20 MG, COMPRIM? [Concomitant]
     Route: 048
     Dates: start: 20170426
  4. NEBIVOLOL. [Concomitant]
     Active Substance: NEBIVOLOL
     Route: 048
  5. PENTASA 2 G, GRANUL?S EN SACHET-DOSE [Concomitant]
     Route: 048
  6. LOXEN L P 50 MG, G?LULE ? LIB?RATION PROLONG?E [Concomitant]
     Active Substance: NICARDIPINE HYDROCHLORIDE
     Route: 048
  7. CLARITHROMYCINE [Suspect]
     Active Substance: CLARITHROMYCIN
     Indication: MYCOBACTERIUM TEST POSITIVE
     Route: 048
     Dates: start: 20170426, end: 20170625
  8. ANSATIPINE 150 MG, G?LULE [Suspect]
     Active Substance: RIFABUTIN
     Indication: MYCOBACTERIUM TEST POSITIVE
     Route: 048
     Dates: start: 20170426, end: 20170625
  9. LEVOTHYROX 100 MICROGRAMMES, COMPRIM? S?CABLE [Concomitant]
     Active Substance: LEVOTHYROXINE SODIUM
     Route: 048
  10. UVEDOSE 100 000 UI, SOLUTION BUVABLE EN AMPOULE [Concomitant]
     Active Substance: CHOLECALCIFEROL
     Route: 048
     Dates: start: 20170426
  11. FOSAMAX 70 MG, COMPRIM? [Concomitant]
     Route: 048
     Dates: start: 20170426

REACTIONS (1)
  - Uveitis [Recovered/Resolved]

NARRATIVE: CASE EVENT DATE: 201706
